FAERS Safety Report 4771456-X (Version None)
Quarter: 2005Q3

REPORT INFORMATION
  Report Type: 
  Country: None (occurrence: None)
  Receive Date: 20050914
  Receipt Date: 20050902
  Transmission Date: 20060218
  Serious: Yes (Other)
  Sender: FDA-Public Use
  Company Number: 2005124582

PATIENT
  Age: 79 Year
  Sex: Female
  Weight: 50.8029 kg

DRUGS (4)
  1. LIPITOR [Suspect]
     Indication: BLOOD CHOLESTEROL
     Dosage: 20 MG (20 MG, 1 IN 1 D), ORAL
     Route: 048
  2. ACETYLSALICYLIC ACID SRT [Concomitant]
  3. MIACALCIN [Concomitant]
  4. DIOVAN HCT [Concomitant]

REACTIONS (5)
  - CARDIAC DISORDER [None]
  - IMPAIRED HEALING [None]
  - INCISION SITE COMPLICATION [None]
  - LARGE INTESTINE PERFORATION [None]
  - MYALGIA [None]
